FAERS Safety Report 4461677-8 (Version None)
Quarter: 2004Q3

REPORT INFORMATION
  Report Type: 
  Country: None (occurrence: None)
  Receive Date: 20040929
  Receipt Date: 20040825
  Transmission Date: 20050211
  Serious: Yes (Hospitalization)
  Sender: FDA-Public Use
  Company Number: 200412760JP

PATIENT
  Age: 29 Year
  Sex: Female

DRUGS (3)
  1. ALLEGRA [Suspect]
     Indication: PRURITUS
     Route: 048
     Dates: start: 20040825, end: 20040825
  2. ZESULAN [Suspect]
     Indication: PRURITUS
     Route: 048
     Dates: start: 20040825, end: 20040825
  3. TATHION [Suspect]
     Indication: PRURITUS
     Route: 048
     Dates: start: 20040825, end: 20040825

REACTIONS (10)
  - BLOOD PRESSURE INCREASED [None]
  - DYSPNOEA [None]
  - ERYTHEMA [None]
  - FALL [None]
  - FEELING HOT [None]
  - FLUSHING [None]
  - HYPOAESTHESIA [None]
  - HYPOAESTHESIA ORAL [None]
  - PANIC DISORDER [None]
  - SHOCK [None]
